FAERS Safety Report 5343855-9 (Version None)
Quarter: 2007Q2

REPORT INFORMATION
  Report Type: 
  Country: None (occurrence: None)
  Receive Date: 20070604
  Receipt Date: 20070529
  Transmission Date: 20071010
  Serious: Yes (Hospitalization, Other)
  Sender: FDA-Public Use
  Company Number: DE-BAYER-200510786BVD

PATIENT
  Age: 78 Year
  Sex: Male
  Weight: 88 kg

DRUGS (15)
  1. MOXIFLOXACIN HCL [Suspect]
     Indication: INFECTION PROPHYLAXIS
     Route: 048
     Dates: start: 20050613, end: 20050617
  2. SALBUTAMOL [Concomitant]
     Indication: CHRONIC OBSTRUCTIVE PULMONARY DISEASE
     Route: 055
     Dates: start: 20030404
  3. SYMBICORT [Concomitant]
     Route: 055
     Dates: start: 20050104
  4. PLAVIX [Concomitant]
     Indication: CORONARY ARTERY DISEASE
     Route: 048
  5. RAMIPRIL [Concomitant]
     Route: 048
  6. ZOCOR [Concomitant]
     Indication: HYPERCHOLESTEROLAEMIA
     Route: 048
  7. TORSEMIDE [Concomitant]
     Indication: CARDIAC FAILURE
     Route: 048
  8. ALLOPURINOL [Concomitant]
     Indication: HYPERURICAEMIA
     Route: 048
  9. NEBILET [Concomitant]
     Route: 048
  10. MARCUMAR [Concomitant]
     Route: 048
  11. INSULIN [Concomitant]
     Indication: DIABETES MELLITUS
     Route: 058
  12. BRONCHORETARD [Concomitant]
     Indication: CHRONIC OBSTRUCTIVE PULMONARY DISEASE
     Route: 048
     Dates: start: 20021023
  13. ALNA [Concomitant]
     Indication: BENIGN PROSTATIC HYPERPLASIA
     Route: 048
     Dates: start: 20000101, end: 20050905
  14. OMNIC [Concomitant]
     Route: 065
     Dates: start: 20050814
  15. PERENTEROL [Concomitant]
     Route: 065
     Dates: start: 20050814, end: 20050831

REACTIONS (2)
  - PNEUMONIA [None]
  - RENAL FAILURE [None]
